FAERS Safety Report 6704986-1 (Version None)
Quarter: 2010Q2

REPORT INFORMATION
  Report Type: 
  Country: None (occurrence: None)
  Receive Date: 20100430
  Receipt Date: 20100422
  Transmission Date: 20101027
  Serious: Yes (Other)
  Sender: FDA-Public Use
  Company Number: A0855740A

PATIENT
  Sex: Female
  Weight: 65.9 kg

DRUGS (5)
  1. AVANDIA [Suspect]
     Dosage: 8MG PER DAY
     Route: 065
     Dates: start: 20040101, end: 20100401
  2. METFORMIN [Concomitant]
     Dosage: 1000MG TWICE PER DAY
     Route: 065
  3. DIAMICRON [Concomitant]
     Dosage: 90MG PER DAY
     Route: 065
     Dates: start: 20070101
  4. FOSINOPRIL SODIUM [Concomitant]
     Indication: HYPERTENSION
     Dosage: 20MG UNKNOWN
     Route: 065
  5. LIPITOR [Concomitant]
     Indication: LIPIDS INCREASED
     Dosage: 10MG UNKNOWN
     Route: 065

REACTIONS (3)
  - FOOT FRACTURE [None]
  - PATHOLOGICAL FRACTURE [None]
  - UPPER LIMB FRACTURE [None]
